FAERS Safety Report 6934623-2 (Version None)
Quarter: 2010Q3

REPORT INFORMATION
  Report Type: 
  Country: None (occurrence: None)
  Receive Date: 20100820
  Receipt Date: 20100811
  Transmission Date: 20110219
  Serious: Yes (Hospitalization, Disabling, Other)
  Sender: FDA-Public Use
  Company Number: BR-ABBOTT-10P-020-0663700-00

PATIENT
  Sex: Male
  Weight: 87 kg

DRUGS (5)
  1. DEPAKENE [Suspect]
     Indication: PETIT MAL EPILEPSY
     Route: 048
     Dates: start: 20040101
  2. CLOBAZAM [Suspect]
     Indication: SEDATIVE THERAPY
     Route: 048
     Dates: start: 20040101
  3. GARDENAL [Concomitant]
     Indication: PETIT MAL EPILEPSY
     Route: 048
     Dates: start: 20040101
  4. ATACAND [Concomitant]
     Indication: HYPERTENSION
     Route: 048
     Dates: start: 20040101
  5. LIPITOR [Concomitant]
     Indication: BLOOD CHOLESTEROL
     Route: 048
     Dates: start: 20040101

REACTIONS (3)
  - CEREBROVASCULAR ACCIDENT [None]
  - MOBILITY DECREASED [None]
  - PETIT MAL EPILEPSY [None]
